FAERS Safety Report 9236395 (Version 1)
Quarter: 2013Q1

REPORT INFORMATION
  Report Type: Spontaneous
  Country: US (occurrence: None)
  Receive Date: 20121031
  Receipt Date: 20121031
  Transmission Date: 20140127
  Serious: Yes (Other)
  Sender: FDA-Public Use
  Company Number: PHEH2012US012303

PATIENT
  Age: 38 Year
  Sex: Female

DRUGS (1)
  1. GILENYA [Suspect]
     Indication: RELAPSING-REMITTING MULTIPLE SCLEROSIS
     Route: 048
     Dates: start: 201011

REACTIONS (6)
  - Multiple sclerosis relapse [None]
  - Headache [None]
  - Optic neuritis [None]
  - Hypoaesthesia [None]
  - Burning sensation [None]
  - Hyperhidrosis [None]
